FAERS Safety Report 18761587 (Version 2)
Quarter: 2021Q1

REPORT INFORMATION
  Report Type: Spontaneous
  Country: US (occurrence: US)
  Receive Date: 20210120
  Receipt Date: 20210309
  Transmission Date: 20210419
  Serious: Yes (Other)
  Sender: FDA-Public Use
  Company Number: US-ASTRAZENECA-2021A004778

PATIENT

DRUGS (2)
  1. FASENRA [Suspect]
     Active Substance: BENRALIZUMAB
     Route: 058
  2. NUCALA [Suspect]
     Active Substance: MEPOLIZUMAB
     Route: 065

REACTIONS (3)
  - Chest discomfort [Unknown]
  - Anaphylactic reaction [Unknown]
  - Dyspnoea [Unknown]
